FAERS Safety Report 9703703 (Version 1)
Quarter: 2013Q4

REPORT INFORMATION
  Report Type: Spontaneous
  Country: FR (occurrence: FR)
  Receive Date: 20131122
  Receipt Date: 20131122
  Transmission Date: 20140711
  Serious: Yes (Hospitalization, Disabling)
  Sender: FDA-Public Use
  Company Number: FR-JNJFOC-20131110618

PATIENT
  Age: 77 Year
  Sex: Female

DRUGS (9)
  1. REMICADE [Suspect]
     Indication: PEMPHIGOID
     Dosage: FOURTEEN CYCLE OF INFLIXIMAB
     Route: 042
     Dates: start: 20131023
  2. REMICADE [Suspect]
     Indication: PEMPHIGOID
     Route: 042
  3. REMICADE [Suspect]
     Indication: PEMPHIGOID
     Dosage: THIRTEEN CYCLE OF INFLIXIMAB
     Route: 042
     Dates: start: 20130911
  4. ALDACTONE [Suspect]
     Indication: OEDEMA PERIPHERAL
     Route: 048
     Dates: start: 201310, end: 20131023
  5. DAFALGAN CODEINE [Suspect]
     Indication: PRODUCT USED FOR UNKNOWN INDICATION
     Route: 048
     Dates: end: 20131023
  6. DYNAMISAN [Suspect]
     Indication: PRODUCT USED FOR UNKNOWN INDICATION
     Dates: start: 201310, end: 20131023
  7. APRANAX [Suspect]
     Indication: ARTHRALGIA
     Route: 048
     Dates: start: 20130326, end: 20131002
  8. BURINEX [Suspect]
     Indication: OEDEMA PERIPHERAL
     Route: 048
     Dates: start: 20130326, end: 20130409
  9. ACETAMINOPHEN [Suspect]
     Indication: PRODUCT USED FOR UNKNOWN INDICATION
     Route: 048

REACTIONS (3)
  - Hepatitis [Recovering/Resolving]
  - Eosinophilia [Recovering/Resolving]
  - Off label use [Unknown]
